FAERS Safety Report 21134866 (Version 2)
Quarter: 2022Q3

REPORT INFORMATION
  Report Type: Spontaneous
  Country: AT (occurrence: AT)
  Receive Date: 20220727
  Receipt Date: 20220922
  Transmission Date: 20221026
  Serious: Yes (Other)
  Sender: FDA-Public Use
  Company Number: None

PATIENT
  Age: 64 Year
  Sex: Female

DRUGS (3)
  1. ARTHROTEC [Interacting]
     Active Substance: DICLOFENAC SODIUM\MISOPROSTOL
     Dosage: UNK
     Route: 048
     Dates: start: 20220627
  2. DORZOLAMIDE HYDROCHLORIDE\TIMOLOL MALEATE [Interacting]
     Active Substance: DORZOLAMIDE HYDROCHLORIDE\TIMOLOL MALEATE
     Dosage: 2 DF, 1X/DAY (2X TGL SINCE 2013)
     Route: 047
     Dates: start: 2013
  3. LUMIGAN [Interacting]
     Active Substance: BIMATOPROST
     Dosage: 1 DF, 1X/DAY (1X NIGHT SINCE 2013)
     Route: 047
     Dates: start: 2013

REACTIONS (2)
  - Intraocular pressure increased [Unknown]
  - Drug interaction [Unknown]

NARRATIVE: CASE EVENT DATE: 20220714
